FAERS Safety Report 21103259 (Version 1)
Quarter: 2022Q3

REPORT INFORMATION
  Report Type: Spontaneous
  Country: CA (occurrence: CA)
  Receive Date: 20220720
  Receipt Date: 20220720
  Transmission Date: 20221027
  Serious: Yes (Other)
  Sender: FDA-Public Use
  Company Number: CA-OCTA-HAPL01722CA

PATIENT
  Age: 49 Week
  Sex: Male

DRUGS (1)
  1. HUMAN IMMUNOGLOBULIN G [Suspect]
     Active Substance: HUMAN IMMUNOGLOBULIN G
     Indication: Kawasaki^s disease
     Route: 065

REACTIONS (4)
  - Fatigue [Unknown]
  - Haemoglobin decreased [Unknown]
  - Jaundice [Unknown]
  - Tachycardia [Unknown]
